FAERS Safety Report 7122707-8 (Version None)
Quarter: 2010Q4

REPORT INFORMATION
  Report Type: 
  Country: None (occurrence: None)
  Receive Date: 20101124
  Receipt Date: 20101119
  Transmission Date: 20110411
  Serious: No
  Sender: FDA-Public Use
  Company Number: US-PFIZER INC-2010153692

PATIENT
  Sex: Male
  Weight: 106.58 kg

DRUGS (6)
  1. TOVIAZ [Suspect]
     Indication: POLLAKIURIA
     Dosage: 4 MG, 1X/DAY
     Route: 048
     Dates: start: 20101118, end: 20101119
  2. LUMIGAN [Concomitant]
     Indication: GLAUCOMA
     Dosage: DAILY
     Route: 047
  3. BRIMONIDINE TARTRATE [Concomitant]
     Indication: EYE DISORDER
     Dosage: UNK
     Route: 047
  4. SIMVASTATIN [Concomitant]
     Dosage: 40 MG, 1X/DAY
  5. INDAPAMIDE [Concomitant]
     Dosage: 2.5 MG, 1X/DAY
  6. METFORMIN [Concomitant]
     Indication: DIABETES MELLITUS
     Dosage: 500 MG, 1X/DAY
     Route: 048

REACTIONS (2)
  - ABDOMINAL DISTENSION [None]
  - VISION BLURRED [None]
